FAERS Safety Report 22528688 (Version 1)
Quarter: 2023Q2

REPORT INFORMATION
  Report Type: Spontaneous
  Country: KR (occurrence: KR)
  Receive Date: 20230607
  Receipt Date: 20230607
  Transmission Date: 20230721
  Serious: Yes (Hospitalization)
  Sender: FDA-Public Use
  Company Number: KR-ORGANON-O2306KOR000211

PATIENT
  Age: 57 Year
  Sex: Female
  Weight: 67.7 kg

DRUGS (20)
  1. HYDROCHLOROTHIAZIDE\LOSARTAN POTASSIUM [Suspect]
     Active Substance: HYDROCHLOROTHIAZIDE\LOSARTAN POTASSIUM
     Indication: Essential hypertension
     Dosage: UNK
     Route: 048
     Dates: start: 20140224
  2. HUMAN IMMUNOGLOBULIN G [Suspect]
     Active Substance: HUMAN IMMUNOGLOBULIN G
     Indication: Sepsis
     Dosage: 30000 MILLIGRAM, ROUTE REPORTED AS VEIN
     Route: 042
     Dates: start: 20200519, end: 20200520
  3. TENOFOVIR DISOPROXIL FUMARATE [Concomitant]
     Active Substance: TENOFOVIR DISOPROXIL FUMARATE
     Dosage: UNK
     Route: 048
     Dates: start: 20200416
  4. ITRACONAZOLE [Concomitant]
     Active Substance: ITRACONAZOLE
     Indication: Prophylaxis
     Dosage: UNK
     Route: 048
     Dates: start: 20200422
  5. PANTOPRAZOLE SODIUM [Concomitant]
     Active Substance: PANTOPRAZOLE SODIUM
     Indication: Prophylaxis
     Dosage: UNK, DOSAGE FORM ENTERIC COATED FILM-COATED TABLETS
     Route: 048
     Dates: start: 20200429
  6. ASPIRIN [Concomitant]
     Active Substance: ASPIRIN
     Indication: Liver transplant
     Dosage: UNK
     Route: 048
     Dates: start: 20061031
  7. GLIMEPIRIDE [Concomitant]
     Active Substance: GLIMEPIRIDE
     Indication: Diabetes mellitus
     Dosage: UNK
     Route: 048
     Dates: start: 20180716
  8. LINAGLIPTIN [Concomitant]
     Active Substance: LINAGLIPTIN
     Indication: Diabetes mellitus
     Dosage: UNK
     Route: 048
     Dates: start: 20151116
  9. BILBERRY EXTRACT [Concomitant]
     Indication: Diabetic retinopathy
     Dosage: UNK
     Route: 048
     Dates: start: 20180903
  10. BEPOTASTINE BESYLATE [Concomitant]
     Active Substance: BEPOTASTINE BESYLATE
     Indication: Prophylaxis
     Dosage: UNK,
     Route: 048
     Dates: start: 20181217
  11. ALLOPURINOL [Concomitant]
     Active Substance: ALLOPURINOL
     Indication: Renal failure
     Dosage: DOSAGE FORM UNCOATED TABLET
     Route: 048
     Dates: start: 20200414
  12. ACETAMINOPHEN\TRAMADOL HYDROCHLORIDE [Concomitant]
     Active Substance: ACETAMINOPHEN\TRAMADOL HYDROCHLORIDE
     Dosage: UNK DOSAGE FORM SUSTAINED-RELEASE FILM-COATED TABLETS
     Route: 048
     Dates: start: 20200403
  13. METRONIDAZOLE [Concomitant]
     Active Substance: METRONIDAZOLE
     Indication: Sepsis
     Dosage: UNK, ROUTE: VEIN
     Route: 042
     Dates: start: 20200519, end: 20200520
  14. CALCITRIOL [Concomitant]
     Active Substance: CALCITRIOL
     Indication: Renal failure
     Dosage: UNK, DOSAGE FORM SOFT CAPSULES LIQUID
     Route: 048
     Dates: start: 20200413, end: 20200527
  15. CIPROFLOXACIN [Concomitant]
     Active Substance: CIPROFLOXACIN
     Indication: Sepsis
     Dosage: UNK, ROUTE REPORTED AS VEIN
     Route: 042
     Dates: start: 20200519, end: 20200520
  16. SEVELAMER CARBONATE [Concomitant]
     Active Substance: SEVELAMER CARBONATE
     Indication: Renal failure
     Dosage: UNK
     Route: 048
     Dates: start: 20200413, end: 20200527
  17. ACYCLOVIR [Concomitant]
     Active Substance: ACYCLOVIR
     Indication: Prophylaxis
     Dosage: UNK
     Route: 048
     Dates: start: 20200512
  18. RIFAMPIN [Concomitant]
     Active Substance: RIFAMPIN
     Indication: Diffuse large B-cell lymphoma
     Dosage: UNK
     Dates: start: 20200414, end: 20200710
  19. DOXORUBICIN HYDROCHLORIDE [Concomitant]
     Active Substance: DOXORUBICIN HYDROCHLORIDE
     Indication: Diffuse large B-cell lymphoma
     Dosage: UNK
     Dates: start: 20200414, end: 20200710
  20. VINCRISTINE SULFATE [Concomitant]
     Active Substance: VINCRISTINE SULFATE
     Indication: Diffuse large B-cell lymphoma
     Dosage: UNK
     Dates: start: 20200414, end: 20200710

REACTIONS (1)
  - Febrile neutropenia [Recovered/Resolved]

NARRATIVE: CASE EVENT DATE: 20200618
